FAERS Safety Report 25805296 (Version 1)
Quarter: 2025Q3

REPORT INFORMATION
  Report Type: Spontaneous
  Country: GB (occurrence: GB)
  Receive Date: 20250916
  Receipt Date: 20250916
  Transmission Date: 20251021
  Serious: Yes (Other)
  Sender: AUROBINDO
  Company Number: GB-MHRA-MED-202508280940358930-JDQKP

PATIENT
  Sex: Female

DRUGS (2)
  1. CIPROFLOXACIN [Suspect]
     Active Substance: CIPROFLOXACIN
     Indication: Product used for unknown indication
     Dosage: 2 DOSAGE FORM, 3 TIMES A DAY (2 DROPS THREE TIMES A DAY INTO EACH EAR FOR X7 DAYS)
     Route: 065
     Dates: start: 20230823
  2. DEXAMETHASONE [Suspect]
     Active Substance: DEXAMETHASONE
     Indication: Product used for unknown indication
     Dosage: 2 DOSAGE FORM, 3 TIMES A DAY (2  DROPS THREE TIMES A DAY INTO EACH EAR FOR X7 DAYS)
     Route: 065
     Dates: start: 20230823

REACTIONS (13)
  - Deafness [Not Recovered/Not Resolved]
  - Pain in jaw [Unknown]
  - Oropharyngeal pain [Unknown]
  - Dysphagia [Unknown]
  - Glossodynia [Unknown]
  - Ear pain [Not Recovered/Not Resolved]
  - Headache [Unknown]
  - Malaise [Unknown]
  - Tinnitus [Unknown]
  - Oral discomfort [Unknown]
  - Rash [Unknown]
  - Pruritus [Unknown]
  - Ear discomfort [Unknown]

NARRATIVE: CASE EVENT DATE: 20230823
